FAERS Safety Report 6179865-1 (Version None)
Quarter: 2009Q2

REPORT INFORMATION
  Report Type: 
  Country: None (occurrence: None)
  Receive Date: 20090501
  Receipt Date: 20090420
  Transmission Date: 20091009
  Serious: No
  Sender: FDA-Public Use
  Company Number: OPER20090078

PATIENT
  Age: 36 Year
  Sex: Female
  Weight: 70.7611 kg

DRUGS (5)
  1. OPANA ER [Suspect]
     Indication: BENIGN INTRACRANIAL HYPERTENSION
     Dosage: 40 MG, Q12H, PER ORAL
     Route: 048
     Dates: start: 20090304, end: 20090320
  2. OPANA ER [Suspect]
     Indication: HEADACHE
     Dosage: 40 MG, Q12H, PER ORAL
     Route: 048
     Dates: start: 20090304, end: 20090320
  3. SOMA [Concomitant]
  4. DILAUDID [Concomitant]
  5. ATIVAN [Concomitant]

REACTIONS (1)
  - HEADACHE [None]
